FAERS Safety Report 6010065-1 (Version None)
Quarter: 2008Q4

REPORT INFORMATION
  Report Type: 
  Country: None (occurrence: None)
  Receive Date: 20081216
  Receipt Date: 20081201
  Transmission Date: 20090506
  Serious: Yes (Hospitalization)
  Sender: FDA-Public Use
  Company Number: KV200800657

PATIENT
  Age: 49 Year
  Sex: Male

DRUGS (3)
  1. ISOSORBIDE DINITRATE [Suspect]
     Indication: DRUG USE FOR UNKNOWN INDICATION
     Dosage: QD ORAL
     Route: 048
     Dates: start: 20081101
  2. FUROSEMIDE [Concomitant]
  3. CARVEDILOL [Concomitant]

REACTIONS (3)
  - BLOOD GLUCOSE DECREASED [None]
  - LOSS OF CONSCIOUSNESS [None]
  - PRODUCT QUALITY ISSUE [None]
